FAERS Safety Report 9001952 (Version 1)
Quarter: 2013Q1

REPORT INFORMATION
  Report Type: Spontaneous
  Country: CH (occurrence: CH)
  Receive Date: 20130108
  Receipt Date: 20130108
  Transmission Date: 20140127
  Serious: Yes (Other)
  Sender: FDA-Public Use
  Company Number: CH-AMGEN-CHESP2013000359

PATIENT
  Age: 75 Year
  Sex: Male
  Weight: 75 kg

DRUGS (10)
  1. ARANESP [Suspect]
     Indication: PRODUCT USED FOR UNKNOWN INDICATION
     Dosage: 50 MUG, QWK
     Route: 040
     Dates: start: 20121206
  2. ASA [Concomitant]
     Dosage: 100 MG, QD
  3. BACTRIM [Concomitant]
     Dosage: 160 MG, QOD
  4. CALCIPARIN [Concomitant]
     Dosage: 5000 IU, BID
  5. CELLCEPT                           /01275102/ [Concomitant]
     Dosage: 500 MG, QID
  6. INSULATARD                         /00646002/ [Concomitant]
     Dosage: 10 IU, MORNING, 6IU EVENING
     Route: 058
  7. NEXIUM                             /01479302/ [Concomitant]
     Dosage: 40 MG, BID
  8. PREDNISONE [Concomitant]
     Dosage: 20 MG, QD
  9. PROGRAF [Concomitant]
     Dosage: 1 MG, BID
  10. VALCYTE [Concomitant]
     Dosage: 450 MG, QD

REACTIONS (1)
  - Drug administration error [Recovered/Resolved]
